FAERS Safety Report 17342669 (Version 1)
Quarter: 2020Q1

REPORT INFORMATION
  Report Type: Spontaneous
  Country: US (occurrence: US)
  Receive Date: 20200129
  Receipt Date: 20200129
  Transmission Date: 20200409
  Serious: No
  Sender: FDA-Public Use
  Company Number: US-ALLERGAN-1932429US

PATIENT
  Sex: Female

DRUGS (2)
  1. BOTOX [Suspect]
     Active Substance: ONABOTULINUMTOXINA
     Dosage: UNK, SINGLE
     Dates: start: 201907, end: 201907
  2. BOTOX [Suspect]
     Active Substance: ONABOTULINUMTOXINA
     Indication: BLEPHAROSPASM
     Dosage: 3 UNITS, SINGLE
     Dates: start: 201907, end: 201907

REACTIONS (2)
  - Eyelid ptosis [Unknown]
  - Eyelid function disorder [Unknown]
